FAERS Safety Report 9693105 (Version 1)
Quarter: 2013Q4

REPORT INFORMATION
  Report Type: Spontaneous
  Country: DE (occurrence: DE)
  Receive Date: 20131118
  Receipt Date: 20131118
  Transmission Date: 20140711
  Serious: Yes (Hospitalization, Other)
  Sender: FDA-Public Use
  Company Number: DE-ELI_LILLY_AND_COMPANY-DE201311001550

PATIENT
  Age: 38 Year
  Sex: Female

DRUGS (3)
  1. ZYPREXA [Suspect]
     Indication: OBSESSIVE-COMPULSIVE DISORDER
     Dosage: 25 MG, QD
     Route: 048
     Dates: start: 20120315
  2. MIRTAZAPINE [Suspect]
     Indication: PRODUCT USED FOR UNKNOWN INDICATION
     Dosage: 15 MG, UNKNOWN
     Route: 065
     Dates: start: 20120325, end: 20120906
  3. CITALOPRAM [Suspect]
     Indication: PRODUCT USED FOR UNKNOWN INDICATION
     Dosage: 30 MG, UNKNOWN
     Route: 065
     Dates: start: 20120317, end: 20120902

REACTIONS (7)
  - Weight increased [Recovering/Resolving]
  - Obsessive thoughts [Recovering/Resolving]
  - Self-injurious ideation [Unknown]
  - Feeling of despair [Unknown]
  - Appetite disorder [Unknown]
  - Prescribed overdose [Unknown]
  - Off label use [Unknown]
